FAERS Safety Report 17052799 (Version 1)
Quarter: 2019Q4

REPORT INFORMATION
  Report Type: Spontaneous
  Country: ES (occurrence: ES)
  Receive Date: 20191120
  Receipt Date: 20191120
  Transmission Date: 20200122
  Serious: Yes (Other)
  Sender: FDA-Public Use
  Company Number: NVSC2019ES041059

PATIENT
  Age: 4 Year
  Sex: Male

DRUGS (2)
  1. TIMOLOL. [Suspect]
     Active Substance: TIMOLOL
     Indication: OPTIC GLIOMA
     Dosage: UNK UNK, BID
     Route: 061
  2. TRAMETINIB [Suspect]
     Active Substance: TRAMETINIB
     Indication: OPTIC GLIOMA
     Dosage: UNK
     Route: 065

REACTIONS (3)
  - Paronychia [Unknown]
  - Osteomyelitis [Unknown]
  - Product use in unapproved indication [Unknown]
